FAERS Safety Report 11564188 (Version 2)
Quarter: 2015Q4

REPORT INFORMATION
  Report Type: Spontaneous
  Country: US (occurrence: US)
  Receive Date: 20150928
  Receipt Date: 20151002
  Transmission Date: 20160304
  Serious: Yes (Other)
  Sender: FDA-Public Use
  Company Number: US-TEVA-596933USA

PATIENT
  Age: 51 Year
  Sex: Male
  Weight: 100 kg

DRUGS (2)
  1. METOPROLOL [Suspect]
     Active Substance: METOPROLOL
     Dosage: 40 TABLETS OF 25 MG
     Route: 065
  2. AMLODIPINE [Suspect]
     Active Substance: AMLODIPINE BESYLATE
     Dosage: 40 TABLETS OF 5 MG
     Route: 065

REACTIONS (4)
  - Vomiting [Unknown]
  - Somnolence [Unknown]
  - Suicide attempt [Unknown]
  - Intentional overdose [Unknown]
